FAERS Safety Report 6749089-5 (Version None)
Quarter: 2010Q2

REPORT INFORMATION
  Report Type: 
  Country: None (occurrence: None)
  Receive Date: 20100601
  Receipt Date: 20100406
  Transmission Date: 20101027
  Serious: Yes (Hospitalization)
  Sender: FDA-Public Use
  Company Number: FR-BAYER-201021177GPV

PATIENT
  Age: 94 Year
  Sex: Female

DRUGS (7)
  1. GLUCOR [Suspect]
     Route: 048
     Dates: start: 20100116, end: 20100309
  2. LASIX [Suspect]
     Dosage: LONG TERM THERAPY
     Route: 048
     Dates: end: 20100309
  3. METFORMIN HCL [Suspect]
     Dosage: LONG TERM THERAPY
     Route: 048
     Dates: end: 20100309
  4. GLYBURIDE [Suspect]
     Dosage: LONG TERM THERAPY
     Route: 048
     Dates: end: 20100309
  5. TARDYFERON [Suspect]
     Route: 048
     Dates: start: 20100116, end: 20100309
  6. SMECTA (DIOSMECTITE) [Suspect]
     Route: 048
     Dates: start: 20100116, end: 20100309
  7. KARDEGIC [Concomitant]
     Dosage: LONG TERM THERAPY

REACTIONS (1)
  - AGRANULOCYTOSIS [None]
